FAERS Safety Report 9846385 (Version 1)
Quarter: 2013Q4

REPORT INFORMATION
  Report Type: Spontaneous
  Country: US (occurrence: None)
  Receive Date: 20131223
  Receipt Date: 20131223
  Transmission Date: 20140711
  Serious: Yes (Other)
  Sender: FDA-Public Use
  Company Number: CABO-13003344

PATIENT
  Age: 37 Year
  Sex: Female
  Weight: 60.5 kg

DRUGS (4)
  1. COMETRIQ (CABOZANTINIB) CAPSULE [Suspect]
     Indication: TRACHEAL CANCER
     Route: 048
     Dates: start: 20130824
  2. VITAMIN D3 (COLECALCIFEROL) [Concomitant]
  3. IBUPROFEN (IBUPROFEN) [Concomitant]
  4. MULTIVITAMIN (VITAMINS NOS) [Suspect]

REACTIONS (6)
  - Vision blurred [None]
  - Diarrhoea [None]
  - Nausea [None]
  - Dysgeusia [None]
  - Neuropathy peripheral [None]
  - Off label use [None]
